FAERS Safety Report 15395648 (Version 2)
Quarter: 2018Q4

REPORT INFORMATION
  Report Type: Report from Study
  Country: CA (occurrence: CA)
  Receive Date: 20180918
  Receipt Date: 20181005
  Transmission Date: 20190204
  Serious: Yes (Hospitalization)
  Sender: FDA-Public Use
  Company Number: CA-JNJFOC-20180901357

PATIENT
  Age: 73 Year
  Sex: Female

DRUGS (1)
  1. STELARA [Suspect]
     Active Substance: USTEKINUMAB
     Indication: PSORIASIS
     Dosage: STRENGTH = 90 MG ALSO REPORTED AS 84 DAYS
     Route: 058
     Dates: start: 20130402, end: 20180619

REACTIONS (5)
  - Inappropriate schedule of product administration [Unknown]
  - Delirium [Unknown]
  - Fall [Unknown]
  - Orthostatic hypotension [Unknown]
  - Pneumonia [Not Recovered/Not Resolved]

NARRATIVE: CASE EVENT DATE: 20180705
